FAERS Safety Report 17248314 (Version 1)
Quarter: 2020Q1

REPORT INFORMATION
  Report Type: Spontaneous
  Country: CA (occurrence: CA)
  Receive Date: 20200108
  Receipt Date: 20200108
  Transmission Date: 20200409
  Serious: Yes (Other)
  Sender: FDA-Public Use
  Company Number: CA-TEVA-2020-CA-1165875

PATIENT
  Age: 70 Year
  Sex: Female

DRUGS (1)
  1. MOXIFLOXACIN HYDROCHLORIDE. [Suspect]
     Active Substance: MOXIFLOXACIN HYDROCHLORIDE
     Indication: PRODUCT USED FOR UNKNOWN INDICATION
     Route: 065

REACTIONS (10)
  - Headache [Unknown]
  - Dizziness [Unknown]
  - Mouth haemorrhage [Unknown]
  - Product substitution issue [Unknown]
  - Pruritus [Unknown]
  - Sinus pain [Unknown]
  - Nausea [Unknown]
  - Stomatitis [Unknown]
  - Vision blurred [Unknown]
  - Haemorrhage [Unknown]
